FAERS Safety Report 22294804 (Version 5)
Quarter: 2024Q4

REPORT INFORMATION
  Report Type: Report from Study
  Country: DK (occurrence: DK)
  Receive Date: 20230508
  Receipt Date: 20241206
  Transmission Date: 20250114
  Serious: Yes (Death, Hospitalization, Other)
  Sender: TAKEDA
  Company Number: DK-TAKEDA-2023TUS043835

PATIENT
  Age: 52 Year
  Sex: Female

DRUGS (9)
  1. TEDUGLUTIDE [Suspect]
     Active Substance: TEDUGLUTIDE
     Indication: Short-bowel syndrome
     Dosage: UNK
  2. TEDUGLUTIDE [Suspect]
     Active Substance: TEDUGLUTIDE
  3. TEDUGLUTIDE [Suspect]
     Active Substance: TEDUGLUTIDE
  4. TEDUGLUTIDE [Suspect]
     Active Substance: TEDUGLUTIDE
  5. CIPROFLOXACIN [Concomitant]
     Active Substance: CIPROFLOXACIN
     Indication: Overgrowth bacterial
     Dosage: 500 MILLIGRAM, BID
     Dates: start: 20221219, end: 20221223
  6. FOLIC ACID [Concomitant]
     Active Substance: FOLIC ACID
     Indication: Sacroiliitis
     Dosage: 10 MILLIGRAM, 1/WEEK
     Dates: start: 20221027
  7. ONDANSETRON [Concomitant]
     Active Substance: ONDANSETRON
     Indication: Nausea
     Dosage: 4 MILLIGRAM
  8. METOCLOPRAMIDE [Concomitant]
     Active Substance: METOCLOPRAMIDE
     Indication: Nausea
     Dosage: 10 MILLIGRAM
  9. METHOTREXATE [Concomitant]
     Active Substance: METHOTREXATE
     Indication: Sacroiliitis
     Dosage: 15 MILLIGRAM, 1/WEEK
     Dates: start: 20230411, end: 20230718

REACTIONS (3)
  - Liver disorder [Fatal]
  - Myelosuppression [Recovered/Resolved]
  - Hypoglycaemia [Recovered/Resolved]

NARRATIVE: CASE EVENT DATE: 20230220
